FAERS Safety Report 24271278 (Version 2)
Quarter: 2024Q3

REPORT INFORMATION
  Report Type: Spontaneous
  Country: US (occurrence: US)
  Receive Date: 20240901
  Receipt Date: 20240905
  Transmission Date: 20241017
  Serious: No
  Sender: JOHNSON AND JOHNSON
  Company Number: US-VIIV HEALTHCARE LIMITED-US2024103853

PATIENT
  Age: 36 Year
  Sex: Male

DRUGS (2)
  1. RILPIVIRINE [Suspect]
     Active Substance: RILPIVIRINE
     Indication: HIV carrier
     Dosage: 600 ML, Q2M (SUPPOSED TO BE GIVEN EVERY TWO MONTHS)
     Route: 065
  2. CABOTEGRAVIR [Suspect]
     Active Substance: CABOTEGRAVIR
     Indication: HIV carrier
     Dosage: 600 ML, Q2M (SUPPOSED TO BE GIVEN EVERY TWO MONTHS)
     Route: 065

REACTIONS (1)
  - Product dose omission issue [Not Recovered/Not Resolved]
